FAERS Safety Report 5471833-8 (Version None)
Quarter: 2007Q3

REPORT INFORMATION
  Report Type: 
  Country: None (occurrence: None)
  Receive Date: 20070928
  Receipt Date: 20070618
  Transmission Date: 20080115
  Serious: No
  Sender: FDA-Public Use
  Company Number: US-BRISTOL-MYERS SQUIBB COMPANY-13817671

PATIENT
  Age: 63 Year
  Sex: Male
  Weight: 118 kg

DRUGS (4)
  1. DEFINITY [Suspect]
  2. LASIX [Concomitant]
  3. METOPROLOL SUCCINATE [Concomitant]
  4. TERAZOSIN HCL [Concomitant]

REACTIONS (1)
  - BACK PAIN [None]
